FAERS Safety Report 18482481 (Version 1)
Quarter: 2020Q4

REPORT INFORMATION
  Report Type: Spontaneous
  Country: IT (occurrence: IT)
  Receive Date: 20201110
  Receipt Date: 20201110
  Transmission Date: 20210114
  Serious: Yes (Other)
  Sender: FDA-Public Use
  Company Number: IT-BRISTOL-MYERS SQUIBB COMPANY-BMS-2020-093067

PATIENT
  Age: 74 Year
  Sex: Male

DRUGS (1)
  1. NIVOLUMAB [Suspect]
     Active Substance: NIVOLUMAB
     Indication: MALIGNANT MELANOMA
     Dosage: 240 MG 1 CYCLICAL
     Route: 042
     Dates: start: 20170721, end: 20201029

REACTIONS (2)
  - Cortisol decreased [Recovered/Resolved with Sequelae]
  - Hypophysitis [Recovered/Resolved with Sequelae]

NARRATIVE: CASE EVENT DATE: 20180126
